FAERS Safety Report 22297873 (Version 3)
Quarter: 2023Q2

REPORT INFORMATION
  Report Type: Other
  Country: CA (occurrence: CA)
  Receive Date: 20230509
  Receipt Date: 20230607
  Transmission Date: 20230721
  Serious: Yes (Death, Life-Threatening, Hospitalization, Disabling, Other)
  Sender: FDA-Public Use
  Company Number: CA-APOTEX-2023AP007656

PATIENT
  Age: 50 Year
  Sex: Female

DRUGS (189)
  1. METHOTREXATE [Suspect]
     Active Substance: METHOTREXATE
     Indication: Rheumatoid arthritis
     Dosage: 20 MILLIGRAM
     Route: 048
  2. METHOTREXATE [Suspect]
     Active Substance: METHOTREXATE
     Dosage: 25 MILLIGRAM
     Route: 048
  3. METHOTREXATE [Suspect]
     Active Substance: METHOTREXATE
     Dosage: 15 MILLIGRAM, QD
     Route: 048
  4. METHOTREXATE [Suspect]
     Active Substance: METHOTREXATE
     Dosage: 2 GRAM, QD
     Route: 048
  5. METHOTREXATE [Suspect]
     Active Substance: METHOTREXATE
     Dosage: 20 MILLIGRAM, QD
     Route: 048
  6. METHOTREXATE [Suspect]
     Active Substance: METHOTREXATE
     Dosage: UNK
     Route: 065
  7. METHOTREXATE [Suspect]
     Active Substance: METHOTREXATE
     Dosage: 25 DOSAGE FORM
     Route: 048
  8. METHOTREXATE [Suspect]
     Active Substance: METHOTREXATE
     Dosage: 1 DOSAGE FORM, QD
     Route: 048
  9. PREDNISONE [Suspect]
     Active Substance: PREDNISONE
     Indication: Systemic lupus erythematosus
     Dosage: UNK
     Route: 048
  10. PREDNISONE [Suspect]
     Active Substance: PREDNISONE
     Indication: Synovitis
     Dosage: UNK
     Route: 065
  11. PREDNISONE [Suspect]
     Active Substance: PREDNISONE
     Indication: Rheumatoid arthritis
     Dosage: 1 MILLIGRAM
     Route: 065
  12. PREDNISONE [Suspect]
     Active Substance: PREDNISONE
     Indication: Psoriatic arthropathy
     Dosage: 40 MILLIGRAM
     Route: 048
  13. PREDNISONE [Suspect]
     Active Substance: PREDNISONE
     Indication: Pemphigus
     Dosage: 5 MILLIGRAM
     Route: 065
  14. PREDNISONE [Suspect]
     Active Substance: PREDNISONE
     Indication: Inflammation
  15. PREDNISONE [Suspect]
     Active Substance: PREDNISONE
     Indication: Bursitis
  16. DICLOFENAC SODIUM [Suspect]
     Active Substance: DICLOFENAC SODIUM
     Indication: Rheumatoid arthritis
     Dosage: UNK
     Route: 065
  17. DICLOFENAC SODIUM [Suspect]
     Active Substance: DICLOFENAC SODIUM
     Indication: Osteoarthritis
     Dosage: 50 MILLIGRAM
     Route: 065
  18. DICLOFENAC SODIUM [Suspect]
     Active Substance: DICLOFENAC SODIUM
     Indication: Inflammation
  19. DOXYCYCLINE [Suspect]
     Active Substance: DOXYCYCLINE
     Indication: Product used for unknown indication
     Dosage: 40 MILLIGRAM
     Route: 065
  20. HYDROXYCHLOROQUINE [Suspect]
     Active Substance: HYDROXYCHLOROQUINE
     Indication: Rheumatoid arthritis
     Dosage: 400 MILLIGRAM, QD
     Route: 048
  21. HYDROXYCHLOROQUINE [Suspect]
     Active Substance: HYDROXYCHLOROQUINE
     Indication: Systemic lupus erythematosus
     Dosage: UNK
     Route: 065
  22. HYDROXYCHLOROQUINE [Suspect]
     Active Substance: HYDROXYCHLOROQUINE
     Dosage: UNK, QD
     Route: 048
  23. HYDROXYCHLOROQUINE [Suspect]
     Active Substance: HYDROXYCHLOROQUINE
     Dosage: 40 MILLIGRAM
     Route: 065
  24. HYDROXYCHLOROQUINE [Suspect]
     Active Substance: HYDROXYCHLOROQUINE
     Dosage: 400 MILLIGRAM
     Route: 048
  25. HYDROXYCHLOROQUINE [Suspect]
     Active Substance: HYDROXYCHLOROQUINE
     Dosage: 400 MILLIGRAM, QD
     Route: 065
  26. HYDROXYCHLOROQUINE [Suspect]
     Active Substance: HYDROXYCHLOROQUINE
     Dosage: UNK
     Route: 048
  27. IBUPROFEN [Suspect]
     Active Substance: IBUPROFEN
     Indication: Rheumatoid arthritis
     Dosage: UNK
     Route: 065
  28. ACETAMINOPHEN [Suspect]
     Active Substance: ACETAMINOPHEN
     Indication: Rheumatoid arthritis
     Dosage: 10 MILLIGRAM
     Route: 065
  29. ALENDRONATE [Suspect]
     Active Substance: ALENDRONATE SODIUM
     Indication: Rheumatoid arthritis
     Dosage: UNK
     Route: 065
  30. DICLOFENAC SODIUM [Suspect]
     Active Substance: DICLOFENAC SODIUM
     Indication: Product used for unknown indication
     Dosage: UNK
     Route: 065
  31. CALCIUM CARBONATE [Suspect]
     Active Substance: CALCIUM CARBONATE
     Indication: Product used for unknown indication
     Dosage: UNK
     Route: 065
  32. CETIRIZINE [Suspect]
     Active Substance: CETIRIZINE HYDROCHLORIDE
     Indication: Rheumatoid arthritis
     Dosage: 10 MILLIGRAM
     Route: 065
  33. CETIRIZINE [Suspect]
     Active Substance: CETIRIZINE HYDROCHLORIDE
     Indication: Off label use
     Dosage: UNK
     Route: 048
  34. FOLIC ACID [Suspect]
     Active Substance: FOLIC ACID
     Indication: Rheumatoid arthritis
     Dosage: 500 MILLIGRAM
     Route: 065
  35. FOLIC ACID [Suspect]
     Active Substance: FOLIC ACID
     Dosage: 5 MILLIGRAM
     Route: 048
  36. FOLIC ACID [Suspect]
     Active Substance: FOLIC ACID
     Dosage: 5 MILLIGRAM
     Route: 065
  37. FOLIC ACID [Suspect]
     Active Substance: FOLIC ACID
     Dosage: 50 MILLIGRAM
     Route: 048
  38. FOLIC ACID [Suspect]
     Active Substance: FOLIC ACID
     Dosage: UNK
     Route: 065
  39. FOLIC ACID [Suspect]
     Active Substance: FOLIC ACID
     Dosage: 1 MILLIGRAM
     Route: 065
  40. FOLIC ACID [Suspect]
     Active Substance: FOLIC ACID
     Dosage: 25 MILLIGRAM
     Route: 065
  41. LEFLUNOMIDE [Suspect]
     Active Substance: LEFLUNOMIDE
     Indication: Rheumatoid arthritis
     Dosage: UNK
     Route: 048
  42. LEFLUNOMIDE [Suspect]
     Active Substance: LEFLUNOMIDE
     Dosage: 20 MILLIGRAM
     Route: 048
  43. LEFLUNOMIDE [Suspect]
     Active Substance: LEFLUNOMIDE
     Dosage: 20 MILLIGRAM, QD
     Route: 048
  44. LEFLUNOMIDE [Suspect]
     Active Substance: LEFLUNOMIDE
     Dosage: 1 DOSAGE FORM, QD
     Route: 065
  45. LEFLUNOMIDE [Suspect]
     Active Substance: LEFLUNOMIDE
     Dosage: UNK, QD
     Route: 065
  46. MYCOPHENOLATE MOFETIL [Suspect]
     Active Substance: MYCOPHENOLATE MOFETIL
     Indication: Product used for unknown indication
     Dosage: UNK
     Route: 065
  47. NAPROXEN SODIUM [Suspect]
     Active Substance: NAPROXEN SODIUM
     Indication: Rheumatoid arthritis
     Dosage: 1 DOSAGE FORM, QD
     Route: 065
  48. NAPROXEN SODIUM [Suspect]
     Active Substance: NAPROXEN SODIUM
     Dosage: 500 MILLIGRAM
     Route: 065
  49. OXYCODONE [Suspect]
     Active Substance: OXYCODONE
     Indication: Product used for unknown indication
     Dosage: UNK
     Route: 065
  50. ACETAMINOPHEN\OXYCODONE HYDROCHLORIDE [Suspect]
     Active Substance: ACETAMINOPHEN\OXYCODONE HYDROCHLORIDE
     Indication: Product used for unknown indication
     Dosage: UNK
     Route: 065
  51. PANTOPRAZOLE [Suspect]
     Active Substance: PANTOPRAZOLE
     Indication: Product used for unknown indication
     Dosage: UNK
     Route: 065
  52. QUETIAPINE [Suspect]
     Active Substance: QUETIAPINE
     Indication: Product used for unknown indication
     Dosage: UNK
     Route: 065
  53. RAMIPRIL [Suspect]
     Active Substance: RAMIPRIL
     Indication: Product used for unknown indication
     Dosage: UNK
     Route: 065
  54. ACTEMRA [Suspect]
     Active Substance: TOCILIZUMAB
     Indication: Rheumatoid arthritis
     Dosage: UNK
     Route: 058
  55. ACTEMRA [Suspect]
     Active Substance: TOCILIZUMAB
     Dosage: UNK
     Route: 065
  56. ACTEMRA [Suspect]
     Active Substance: TOCILIZUMAB
     Dosage: UNK
     Route: 042
  57. ACTEMRA [Suspect]
     Active Substance: TOCILIZUMAB
     Dosage: 20 MILLIGRAM
     Route: 016
  58. ARAVA [Suspect]
     Active Substance: LEFLUNOMIDE
     Indication: Rheumatoid arthritis
     Dosage: UNK
     Route: 065
  59. ARAVA [Suspect]
     Active Substance: LEFLUNOMIDE
     Dosage: UNK
     Route: 005
  60. ARAVA [Suspect]
     Active Substance: LEFLUNOMIDE
     Dosage: 20 MILLIGRAM, QD
     Route: 048
  61. ARAVA [Suspect]
     Active Substance: LEFLUNOMIDE
     Dosage: UNK
     Route: 048
  62. CELEBREX [Suspect]
     Active Substance: CELECOXIB
     Indication: Rheumatoid arthritis
     Dosage: 2 DOSAGE FORM, QD
     Route: 048
  63. CELEBREX [Suspect]
     Active Substance: CELECOXIB
     Indication: Arthritis
     Dosage: 1 DOSAGE FORM, QD
     Route: 048
  64. CELEBREX [Suspect]
     Active Substance: CELECOXIB
     Dosage: UNK
     Route: 065
  65. CETRIMIDE [Suspect]
     Active Substance: CETRIMIDE
     Indication: Product used for unknown indication
     Dosage: UNK
     Route: 065
  66. CHLORHEXIDINE [Suspect]
     Active Substance: CHLORHEXIDINE
     Indication: Product used for unknown indication
     Dosage: UNK
     Route: 065
  67. METHOTREXATE [Suspect]
     Active Substance: METHOTREXATE
     Indication: Rheumatoid arthritis
     Dosage: 25 MILLIGRAM
     Route: 058
  68. METHOTREXATE [Suspect]
     Active Substance: METHOTREXATE
     Dosage: UNK
     Route: 016
  69. METHOTREXATE [Suspect]
     Active Substance: METHOTREXATE
     Dosage: 25 MILLIGRAM
     Route: 013
  70. CHOLECALCIFEROL [Suspect]
     Active Substance: CHOLECALCIFEROL
     Indication: Rheumatoid arthritis
     Dosage: UNK
     Route: 048
  71. CHOLECALCIFEROL [Suspect]
     Active Substance: CHOLECALCIFEROL
     Dosage: UNK
     Route: 065
  72. CIMZIA [Suspect]
     Active Substance: CERTOLIZUMAB PEGOL
     Indication: Rheumatoid arthritis
     Dosage: 400 MILLIGRAM
     Route: 058
  73. CIMZIA [Suspect]
     Active Substance: CERTOLIZUMAB PEGOL
     Indication: Psoriasis
     Dosage: UNK
     Route: 065
  74. CIMZIA [Suspect]
     Active Substance: CERTOLIZUMAB PEGOL
     Indication: Psoriatic arthropathy
  75. CORTISONE (HYDROCORTISONE) [Suspect]
     Active Substance: HYDROCORTISONE
     Indication: Rheumatoid arthritis
     Dosage: 50 MILLIGRAM
     Route: 065
  76. CORTISONE (HYDROCORTISONE) [Suspect]
     Active Substance: HYDROCORTISONE
     Dosage: UNK
     Route: 048
  77. CORTISONE (HYDROCORTISONE) [Suspect]
     Active Substance: HYDROCORTISONE
     Dosage: 25 MILLIGRAM
     Route: 065
  78. CORTISONE (HYDROCORTISONE) [Suspect]
     Active Substance: HYDROCORTISONE
     Dosage: UNK
     Route: 065
  79. CORTISONE ACETATE [Suspect]
     Active Substance: CORTISONE ACETATE
     Indication: Rheumatoid arthritis
     Dosage: 25 MILLIGRAM
     Route: 048
  80. CORTISONE ACETATE [Suspect]
     Active Substance: CORTISONE ACETATE
     Dosage: 25 MILLIGRAM
     Route: 065
  81. COSENTYX [Suspect]
     Active Substance: SECUKINUMAB
     Indication: Rheumatoid arthritis
     Dosage: UNK
     Route: 005
  82. COSENTYX [Suspect]
     Active Substance: SECUKINUMAB
     Indication: Psoriatic arthropathy
     Dosage: UNK
     Route: 016
  83. COSENTYX [Suspect]
     Active Substance: SECUKINUMAB
     Dosage: UNK
     Route: 065
  84. ENBREL [Suspect]
     Active Substance: ETANERCEPT
     Indication: Rheumatoid arthritis
     Dosage: 20 MILLIGRAM
     Route: 058
  85. ENBREL [Suspect]
     Active Substance: ETANERCEPT
     Indication: Psoriatic arthropathy
     Dosage: 50 MILLIGRAM
     Route: 058
  86. ENBREL [Suspect]
     Active Substance: ETANERCEPT
     Dosage: UNK
     Route: 058
  87. FOSAMAX [Suspect]
     Active Substance: ALENDRONATE SODIUM
     Indication: Rheumatoid arthritis
     Dosage: UNK
     Route: 048
  88. FOSAMAX [Suspect]
     Active Substance: ALENDRONATE SODIUM
     Dosage: UNK
     Route: 058
  89. FOSAMAX [Suspect]
     Active Substance: ALENDRONATE SODIUM
     Dosage: UNK
     Route: 005
  90. FOSAMAX [Suspect]
     Active Substance: ALENDRONATE SODIUM
     Dosage: UNK
     Route: 016
  91. HUMIRA [Suspect]
     Active Substance: ADALIMUMAB
     Indication: Rheumatoid arthritis
     Dosage: 40 MILLIGRAM
     Route: 058
  92. HUMIRA [Suspect]
     Active Substance: ADALIMUMAB
     Indication: Psoriatic arthropathy
     Dosage: UNK
     Route: 058
  93. HYALURONIDASE [Suspect]
     Active Substance: HYALURONIDASE
     Indication: Rheumatoid arthritis
     Dosage: UNK
     Route: 065
  94. HYDROCORTISONE ACETATE [Suspect]
     Active Substance: HYDROCORTISONE ACETATE
     Indication: Rheumatoid arthritis
     Dosage: UNK
     Route: 058
  95. HYDROCORTISONE ACETATE [Suspect]
     Active Substance: HYDROCORTISONE ACETATE
     Dosage: UNK
     Route: 048
  96. HYDROCORTISONE ACETATE [Suspect]
     Active Substance: HYDROCORTISONE ACETATE
     Dosage: UNK
     Route: 065
  97. INFLIXIMAB [Suspect]
     Active Substance: INFLIXIMAB
     Indication: Rheumatoid arthritis
     Dosage: 400 MILLIGRAM
     Route: 065
  98. INFLIXIMAB [Suspect]
     Active Substance: INFLIXIMAB
     Indication: Psoriatic arthropathy
     Dosage: UNK
     Route: 042
  99. KEVZARA [Suspect]
     Active Substance: SARILUMAB
     Indication: Rheumatoid arthritis
     Dosage: 500 MILLIGRAM
     Route: 065
  100. KEVZARA [Suspect]
     Active Substance: SARILUMAB
     Dosage: UNK
     Route: 016
  101. FLUMETHASONE PIVALATE [Suspect]
     Active Substance: FLUMETHASONE PIVALATE
     Indication: Rheumatoid arthritis
     Dosage: UNK
     Route: 058
  102. FLUMETHASONE PIVALATE [Suspect]
     Active Substance: FLUMETHASONE PIVALATE
     Dosage: UNK
     Route: 065
  103. LYRICA [Suspect]
     Active Substance: PREGABALIN
     Indication: Product used for unknown indication
     Dosage: UNK
     Route: 065
  104. ORENCIA [Suspect]
     Active Substance: ABATACEPT
     Indication: Rheumatoid arthritis
     Dosage: UNK
     Route: 058
  105. ORENCIA [Suspect]
     Active Substance: ABATACEPT
     Indication: Psoriatic arthropathy
     Dosage: UNK
     Route: 042
  106. ORENCIA [Suspect]
     Active Substance: ABATACEPT
     Dosage: UNK
     Route: 065
  107. OTEZLA [Suspect]
     Active Substance: APREMILAST
     Indication: Product used for unknown indication
     Dosage: 3 MILLIGRAM, BID
     Route: 048
  108. OTEZLA [Suspect]
     Active Substance: APREMILAST
     Dosage: 3 MILLIGRAM
     Route: 065
  109. PERIOGARD [Suspect]
     Active Substance: CHLORHEXIDINE GLUCONATE
     Indication: Product used for unknown indication
     Dosage: UNK
     Route: 065
  110. PLAQUENIL [Suspect]
     Active Substance: HYDROXYCHLOROQUINE SULFATE
     Indication: Rheumatoid arthritis
     Dosage: 1 DOSAGE FORM, QD
     Route: 048
  111. PLAQUENIL [Suspect]
     Active Substance: HYDROXYCHLOROQUINE SULFATE
     Dosage: 400 MILLIGRAM, QD
     Route: 066
  112. PLAQUENIL [Suspect]
     Active Substance: HYDROXYCHLOROQUINE SULFATE
     Dosage: 400 MILLIGRAM, QD
     Route: 065
  113. PLAQUENIL [Suspect]
     Active Substance: HYDROXYCHLOROQUINE SULFATE
     Dosage: UNK
     Route: 005
  114. PHTHALYLSULFATHIAZOLE [Suspect]
     Active Substance: PHTHALYLSULFATHIAZOLE
     Indication: Product used for unknown indication
     Dosage: 500 MILLIGRAM
     Route: 048
  115. PHTHALYLSULFATHIAZOLE [Suspect]
     Active Substance: PHTHALYLSULFATHIAZOLE
     Dosage: UNK
     Route: 005
  116. PHTHALYLSULFATHIAZOLE [Suspect]
     Active Substance: PHTHALYLSULFATHIAZOLE
     Dosage: UNK
     Route: 016
  117. PHTHALYLSULFATHIAZOLE [Suspect]
     Active Substance: PHTHALYLSULFATHIAZOLE
     Dosage: UNK
     Route: 065
  118. PSEUDOEPHEDRINE HYDROCHLORIDE [Suspect]
     Active Substance: PSEUDOEPHEDRINE HYDROCHLORIDE
     Indication: Rheumatoid arthritis
     Dosage: 25 MILLIGRAM
     Route: 065
  119. PSEUDOEPHEDRINE HYDROCHLORIDE [Suspect]
     Active Substance: PSEUDOEPHEDRINE HYDROCHLORIDE
     Indication: Off label use
  120. CETIRIZINE HYDROCHLORIDE\PSEUDOEPHEDRINE HYDROCHLORIDE [Suspect]
     Active Substance: CETIRIZINE HYDROCHLORIDE\PSEUDOEPHEDRINE HYDROCHLORIDE
     Indication: Urticaria
     Dosage: 25 MILLIGRAM
     Route: 005
  121. CETIRIZINE HYDROCHLORIDE\PSEUDOEPHEDRINE HYDROCHLORIDE [Suspect]
     Active Substance: CETIRIZINE HYDROCHLORIDE\PSEUDOEPHEDRINE HYDROCHLORIDE
     Indication: Rheumatoid arthritis
     Dosage: 10 MILLIGRAM
     Route: 048
  122. CETIRIZINE HYDROCHLORIDE\PSEUDOEPHEDRINE HYDROCHLORIDE [Suspect]
     Active Substance: CETIRIZINE HYDROCHLORIDE\PSEUDOEPHEDRINE HYDROCHLORIDE
     Indication: Off label use
     Dosage: 25 MILLIGRAM
     Route: 065
  123. CETIRIZINE HYDROCHLORIDE\PSEUDOEPHEDRINE HYDROCHLORIDE [Suspect]
     Active Substance: CETIRIZINE HYDROCHLORIDE\PSEUDOEPHEDRINE HYDROCHLORIDE
     Dosage: UNK
     Route: 065
  124. CETIRIZINE HYDROCHLORIDE\PSEUDOEPHEDRINE HYDROCHLORIDE [Suspect]
     Active Substance: CETIRIZINE HYDROCHLORIDE\PSEUDOEPHEDRINE HYDROCHLORIDE
     Dosage: UNK
     Route: 048
  125. CETIRIZINE HYDROCHLORIDE\PSEUDOEPHEDRINE HYDROCHLORIDE [Suspect]
     Active Substance: CETIRIZINE HYDROCHLORIDE\PSEUDOEPHEDRINE HYDROCHLORIDE
     Dosage: 10 MILLIGRAM
     Route: 065
  126. REMICADE [Suspect]
     Active Substance: INFLIXIMAB
     Indication: Rheumatoid arthritis
     Dosage: 300 MILLIGRAM
     Route: 042
  127. REMICADE [Suspect]
     Active Substance: INFLIXIMAB
     Indication: Colitis ulcerative
     Dosage: UNK
     Route: 042
  128. REMICADE [Suspect]
     Active Substance: INFLIXIMAB
     Dosage: UNK
     Route: 065
  129. RITUXIMAB [Suspect]
     Active Substance: RITUXIMAB
     Indication: Rheumatoid arthritis
     Dosage: UNK
     Route: 042
  130. RITUXIMAB [Suspect]
     Active Substance: RITUXIMAB
     Dosage: UNK
     Route: 058
  131. RITUXIMAB [Suspect]
     Active Substance: RITUXIMAB
     Dosage: UNK
     Route: 016
  132. RITUXIMAB [Suspect]
     Active Substance: RITUXIMAB
     Dosage: UNK
     Route: 065
  133. DIETARY SUPPLEMENT\HERBALS [Suspect]
     Active Substance: DIETARY SUPPLEMENT\HERBALS
     Indication: Product used for unknown indication
     Dosage: UNK
     Route: 065
  134. SIMPONI [Suspect]
     Active Substance: GOLIMUMAB
     Indication: Rheumatoid arthritis
     Dosage: 50 MILLIGRAM
     Route: 058
  135. SIMPONI [Suspect]
     Active Substance: GOLIMUMAB
     Dosage: UNK
     Route: 058
  136. SIMPONI [Suspect]
     Active Substance: GOLIMUMAB
     Dosage: UNK
     Route: 065
  137. SIMPONI [Suspect]
     Active Substance: GOLIMUMAB
     Dosage: UNK
     Route: 042
  138. SIMPONI [Suspect]
     Active Substance: GOLIMUMAB
     Dosage: 50 MILLIGRAM
     Route: 058
  139. SOLU-MEDROL [Suspect]
     Active Substance: METHYLPREDNISOLONE SODIUM SUCCINATE
     Indication: Product used for unknown indication
     Dosage: UNK
     Route: 065
  140. MOXIFLOXACIN [Suspect]
     Active Substance: MOXIFLOXACIN
     Indication: Rheumatoid arthritis
     Dosage: UNK
     Route: 058
  141. STELARA [Suspect]
     Active Substance: USTEKINUMAB
     Indication: Rheumatoid arthritis
     Dosage: 45 MILLIGRAM
     Route: 042
  142. STELARA [Suspect]
     Active Substance: USTEKINUMAB
     Dosage: 45 MILLIGRAM
     Route: 058
  143. STELARA [Suspect]
     Active Substance: USTEKINUMAB
     Dosage: UNK
     Route: 058
  144. STELARA [Suspect]
     Active Substance: USTEKINUMAB
     Dosage: UNK
     Route: 042
  145. STELARA [Suspect]
     Active Substance: USTEKINUMAB
     Dosage: UNK
     Route: 065
  146. SULFASALAZINE [Suspect]
     Active Substance: SULFASALAZINE
     Indication: Rheumatoid arthritis
     Dosage: 50 MILLIGRAM, QD
     Route: 048
  147. SULFASALAZINE [Suspect]
     Active Substance: SULFASALAZINE
     Dosage: 1 GRAM, BID
     Route: 048
  148. SULFASALAZINE [Suspect]
     Active Substance: SULFASALAZINE
     Dosage: 1000 MILLIGRAM, BID
     Route: 048
  149. SULFASALAZINE [Suspect]
     Active Substance: SULFASALAZINE
     Dosage: 300 MILLIGRAM, QD
     Route: 065
  150. SULFASALAZINE [Suspect]
     Active Substance: SULFASALAZINE
     Dosage: 2 GRAM, QD
     Route: 048
  151. SULFASALAZINE [Suspect]
     Active Substance: SULFASALAZINE
     Dosage: 500 MILLIGRAM
     Route: 065
  152. PANTOPRAZOLE MAGNESIUM [Suspect]
     Active Substance: PANTOPRAZOLE MAGNESIUM
     Indication: Product used for unknown indication
     Route: 016
  153. PANTOPRAZOLE MAGNESIUM [Suspect]
     Active Substance: PANTOPRAZOLE MAGNESIUM
     Dosage: UNK
     Route: 065
  154. TOPICORT [Suspect]
     Active Substance: DESOXIMETASONE
     Indication: Rheumatoid arthritis
     Dosage: UNK
     Route: 065
  155. VITAMIN C [Suspect]
     Active Substance: ASCORBIC ACID
     Indication: Product used for unknown indication
     Route: 065
  156. HYDROCORTISONE BUTYRATE [Suspect]
     Active Substance: HYDROCORTISONE BUTYRATE
     Indication: Rheumatoid arthritis
     Dosage: UNK
     Route: 048
  157. XELJANZ [Suspect]
     Active Substance: TOFACITINIB CITRATE
     Indication: Rheumatoid arthritis
     Dosage: 5 MILLIGRAM, QD
     Route: 048
  158. XELJANZ [Suspect]
     Active Substance: TOFACITINIB CITRATE
     Indication: Psoriatic arthropathy
     Dosage: 5 MILLIGRAM, BID
     Route: 065
  159. XELJANZ [Suspect]
     Active Substance: TOFACITINIB CITRATE
     Dosage: 10 MILLIGRAM, QD
     Route: 065
  160. XELJANZ [Suspect]
     Active Substance: TOFACITINIB CITRATE
     Dosage: UNK
     Route: 065
  161. XELJANZ [Suspect]
     Active Substance: TOFACITINIB CITRATE
     Dosage: 5 MILLIGRAM
     Route: 048
  162. XELJANZ [Suspect]
     Active Substance: TOFACITINIB CITRATE
     Dosage: UNK
     Route: 032
  163. XELJANZ [Suspect]
     Active Substance: TOFACITINIB CITRATE
     Dosage: UNK
     Route: 005
  164. XELJANZ [Suspect]
     Active Substance: TOFACITINIB CITRATE
     Dosage: 5 MILLIGRAM
     Route: 016
  165. ZYRTEC D 12 HOUR [Suspect]
     Active Substance: CETIRIZINE HYDROCHLORIDE\PSEUDOEPHEDRINE HYDROCHLORIDE
     Indication: Rheumatoid arthritis
     Dosage: UNK
     Route: 065
  166. ACETAMINOPHEN [Concomitant]
     Active Substance: ACETAMINOPHEN
     Indication: Product used for unknown indication
     Dosage: UNK
     Route: 065
  167. ATIVAN [Concomitant]
     Active Substance: LORAZEPAM
     Indication: Product used for unknown indication
     Dosage: UNK
     Route: 065
  168. CAFFEINE CITRATE [Concomitant]
     Active Substance: CAFFEINE CITRATE
     Indication: Product used for unknown indication
     Dosage: UNK
     Route: 065
  169. CODEINE [Concomitant]
     Active Substance: CODEINE
     Indication: Product used for unknown indication
     Dosage: UNK
     Route: 065
  170. DESOGESTREL\ETHINYL ESTRADIOL [Concomitant]
     Active Substance: DESOGESTREL\ETHINYL ESTRADIOL
     Indication: Product used for unknown indication
     Dosage: UNK
     Route: 065
  171. DEXAMETHASONE [Concomitant]
     Active Substance: DEXAMETHASONE
     Indication: Product used for unknown indication
     Dosage: UNK
     Route: 065
  172. DICLOFENAC POTASSIUM [Concomitant]
     Active Substance: DICLOFENAC POTASSIUM
     Indication: Product used for unknown indication
     Dosage: UNK
     Route: 065
  173. ERGOCALCIFEROL [Concomitant]
     Active Substance: ERGOCALCIFEROL
     Indication: Product used for unknown indication
     Dosage: UNK
     Route: 065
  174. GLUCOSAMINE [Concomitant]
     Active Substance: GLUCOSAMINE
     Indication: Product used for unknown indication
     Dosage: UNK
     Route: 065
  175. LANSOPRAZOLE [Concomitant]
     Active Substance: LANSOPRAZOLE
     Indication: Product used for unknown indication
     Dosage: UNK
     Route: 065
  176. LEVOTHYROXINE SODIUM [Concomitant]
     Active Substance: LEVOTHYROXINE SODIUM
     Indication: Product used for unknown indication
     Dosage: UNK
     Route: 065
  177. MAGNESIUM [Concomitant]
     Active Substance: MAGNESIUM
     Indication: Product used for unknown indication
     Dosage: UNK
     Route: 065
  178. MELOXICAM [Concomitant]
     Active Substance: MELOXICAM
     Indication: Product used for unknown indication
     Dosage: UNK
     Route: 065
  179. PANTOPRAZOLE SODIUM [Concomitant]
     Active Substance: PANTOPRAZOLE SODIUM
     Indication: Product used for unknown indication
     Dosage: UNK
     Route: 065
  180. PIROXICAM [Concomitant]
     Active Substance: PIROXICAM
     Indication: Product used for unknown indication
     Dosage: UNK
     Route: 065
  181. PREDNISOLONE [Concomitant]
     Active Substance: PREDNISOLONE
     Indication: Product used for unknown indication
     Dosage: UNK
     Route: 065
  182. PREVACID [Concomitant]
     Active Substance: LANSOPRAZOLE
     Indication: Product used for unknown indication
     Dosage: UNK
     Route: 065
  183. PRINIVIL [Concomitant]
     Active Substance: LISINOPRIL
     Indication: Product used for unknown indication
     Dosage: UNK
     Route: 065
  184. RISEDRONATE SODIUM [Concomitant]
     Active Substance: RISEDRONATE SODIUM
     Indication: Product used for unknown indication
     Dosage: UNK
     Route: 065
  185. SULFASALAZINE [Concomitant]
     Active Substance: SULFASALAZINE
     Indication: Product used for unknown indication
     Dosage: UNK
     Route: 065
  186. TYLENOL [Concomitant]
     Active Substance: ACETAMINOPHEN
     Indication: Product used for unknown indication
     Dosage: UNK
     Route: 065
  187. FISH OIL [Concomitant]
     Active Substance: FISH OIL
     Indication: Product used for unknown indication
     Dosage: UNK
     Route: 065
  188. ZESTRIL [Concomitant]
     Active Substance: LISINOPRIL
     Indication: Product used for unknown indication
     Dosage: UNK
     Route: 065
  189. CODEINE PHOSPHATE [Concomitant]
     Active Substance: CODEINE PHOSPHATE
     Indication: Product used for unknown indication
     Dosage: UNK
     Route: 065

REACTIONS (109)
  - Prescribed overdose [Fatal]
  - Abdominal discomfort [Fatal]
  - Abdominal pain upper [Fatal]
  - Alopecia [Fatal]
  - Anti-cyclic citrullinated peptide antibody positive [Fatal]
  - Anxiety [Fatal]
  - Arthralgia [Fatal]
  - Asthenia [Fatal]
  - Arthropathy [Fatal]
  - Asthma [Fatal]
  - Autoimmune disorder [Fatal]
  - Blister [Fatal]
  - Blood cholesterol increased [Fatal]
  - Bursitis [Fatal]
  - C-reactive protein [Fatal]
  - C-reactive protein abnormal [Fatal]
  - Chest pain [Fatal]
  - Condition aggravated [Fatal]
  - Confusional state [Fatal]
  - Contusion [Fatal]
  - Decreased appetite [Fatal]
  - Deep vein thrombosis postoperative [Fatal]
  - Diarrhoea [Fatal]
  - Discomfort [Fatal]
  - Dizziness [Fatal]
  - Drug hypersensitivity [Fatal]
  - Drug intolerance [Fatal]
  - Dry mouth [Fatal]
  - Duodenal ulcer perforation [Fatal]
  - Dyspnoea [Fatal]
  - Facet joint syndrome [Fatal]
  - Fatigue [Fatal]
  - Fibromyalgia [Fatal]
  - Gait inability [Fatal]
  - Gastrointestinal disorder [Fatal]
  - General physical health deterioration [Fatal]
  - Glossodynia [Fatal]
  - Hand deformity [Fatal]
  - Headache [Fatal]
  - Hepatic enzyme increased [Fatal]
  - Hip arthroplasty [Fatal]
  - Hypersensitivity [Fatal]
  - Hypertension [Fatal]
  - Hypoaesthesia [Fatal]
  - Ill-defined disorder [Fatal]
  - Impaired healing [Fatal]
  - Inflammation [Fatal]
  - Infusion related reaction [Fatal]
  - Injury [Fatal]
  - Irritable bowel syndrome [Fatal]
  - Joint range of motion decreased [Fatal]
  - Joint swelling [Fatal]
  - Knee arthroplasty [Fatal]
  - Lip dry [Fatal]
  - Liver disorder [Fatal]
  - Liver injury [Fatal]
  - Lower limb fracture [Fatal]
  - Lung disorder [Fatal]
  - Malaise [Fatal]
  - Mobility decreased [Fatal]
  - Muscle injury [Fatal]
  - Muscle spasms [Fatal]
  - Musculoskeletal pain [Fatal]
  - Musculoskeletal stiffness [Fatal]
  - Night sweats [Fatal]
  - Obesity [Fatal]
  - Oedema [Fatal]
  - Osteoarthritis [Fatal]
  - Pain [Fatal]
  - Paraesthesia [Fatal]
  - Pemphigus [Fatal]
  - Pericarditis [Fatal]
  - Peripheral swelling [Fatal]
  - Peripheral venous disease [Fatal]
  - Pruritus [Fatal]
  - Psoriatic arthropathy [Fatal]
  - Pyrexia [Fatal]
  - Rash [Fatal]
  - Rheumatic fever [Fatal]
  - Rheumatoid arthritis [Fatal]
  - Rheumatoid factor positive [Fatal]
  - Road traffic accident [Fatal]
  - Sciatica [Fatal]
  - Sleep disorder due to general medical condition, insomnia type [Fatal]
  - Stomatitis [Fatal]
  - Swelling [Fatal]
  - Swollen joint count increased [Fatal]
  - Synovitis [Fatal]
  - Systemic lupus erythematosus [Fatal]
  - Type 2 diabetes mellitus [Fatal]
  - Urticaria [Fatal]
  - Vomiting [Fatal]
  - Weight increased [Fatal]
  - Wheezing [Fatal]
  - Wound [Fatal]
  - Product use in unapproved indication [Fatal]
  - Intentional product use issue [Fatal]
  - Maternal exposure during pregnancy [Fatal]
  - Contraindicated product administered [Fatal]
  - Product use issue [Fatal]
  - Off label use [Fatal]
  - Pregnancy [Fatal]
  - Drug ineffective [Fatal]
  - Helicobacter infection [Fatal]
  - Lower respiratory tract infection [Fatal]
  - Folliculitis [Fatal]
  - Nasopharyngitis [Fatal]
  - Infection [Fatal]
  - Sinusitis [Fatal]
